FAERS Safety Report 22350744 (Version 1)
Quarter: 2023Q2

REPORT INFORMATION
  Report Type: Report from Study
  Country: US (occurrence: US)
  Receive Date: 20230522
  Receipt Date: 20230522
  Transmission Date: 20230722
  Serious: Yes (Death)
  Sender: FDA-Public Use
  Company Number: US-ABBVIE-22K-163-4457231-00

PATIENT
  Sex: Female
  Weight: 40 kg

DRUGS (2)
  1. VENCLEXTA [Suspect]
     Active Substance: VENETOCLAX
     Indication: Chloroma
     Dosage: TAKE 1 TABLET BY MOUTH (100MG TOTAL) DAILY WITH DINNER OR AS DIRECTED, FORM STRENGTH: 100 MILLIGRAM
     Route: 048
  2. VORICONAZOLE [Concomitant]
     Active Substance: VORICONAZOLE
     Indication: Product used for unknown indication
     Route: 065

REACTIONS (5)
  - Death [Fatal]
  - Hypoacusis [Unknown]
  - Visual impairment [Unknown]
  - Memory impairment [Unknown]
  - Off label use [Unknown]
